FAERS Safety Report 10137987 (Version 1)
Quarter: 2014Q2

REPORT INFORMATION
  Report Type: Spontaneous
  Country: CA (occurrence: None)
  Receive Date: 20140423
  Receipt Date: 20140423
  Transmission Date: 20141212
  Serious: Yes (Hospitalization)
  Sender: FDA-Public Use
  Company Number: CA-145535

PATIENT
  Sex: Male

DRUGS (2)
  1. WINRHO SDF [Suspect]
     Indication: PROPHYLAXIS AGAINST RH ISOIMMUNISATION
     Route: 064
     Dates: start: 20131223, end: 20131223
  2. WINRHO SDF [Suspect]
     Route: 064
     Dates: start: 20131223, end: 20131223

REACTIONS (2)
  - Foetal exposure during pregnancy [None]
  - Rhesus haemolytic disease of newborn [None]
